FAERS Safety Report 23034868 (Version 5)
Quarter: 2024Q1

REPORT INFORMATION
  Report Type: Spontaneous
  Country: US (occurrence: US)
  Receive Date: 20231005
  Receipt Date: 20240312
  Transmission Date: 20240410
  Serious: Yes (Other)
  Sender: FDA-Public Use
  Company Number: US-PFIZER INC-PV202300164183

PATIENT
  Age: 64 Year
  Sex: Female
  Weight: 72.109 kg

DRUGS (2)
  1. IBRANCE [Suspect]
     Active Substance: PALBOCICLIB
     Indication: Breast cancer stage IV
     Dosage: 100 MG
  2. IBRANCE [Suspect]
     Active Substance: PALBOCICLIB
     Dosage: (ONCE DAILY TAKEN WITH OR WITHOUT FOOD FOR 14 DAYS FOLLOWED BY 14 DAYS OFF)
     Route: 048

REACTIONS (2)
  - Neutropenia [Not Recovered/Not Resolved]
  - White blood cell count decreased [Unknown]
